FAERS Safety Report 4388292-9 (Version None)
Quarter: 2004Q2

REPORT INFORMATION
  Report Type: 
  Country: None (occurrence: None)
  Receive Date: 20040625
  Receipt Date: 20040614
  Transmission Date: 20050107
  Serious: Yes (Hospitalization)
  Sender: FDA-Public Use
  Company Number: A02200401930

PATIENT
  Age: 73 Year
  Sex: Female

DRUGS (11)
  1. STILNOX (ZOLPIDEM) - TABLET - 10 MG [Suspect]
     Indication: SLEEP DISORDER
     Dosage: ORAL
     Route: 048
     Dates: end: 20040504
  2. STABLON - (TIANEPTINE) - TABLET - 12.5 MG [Suspect]
     Dosage: ORAL
     Route: 048
     Dates: start: 20040413, end: 20040504
  3. VALPROATE SODIUM [Concomitant]
  4. ELAVIL [Concomitant]
  5. RISPERDAL [Concomitant]
  6. FURADANTIN [Concomitant]
  7. ACTONEL [Concomitant]
  8. CALCIUM VITAMINE D3 (CALCIUM) [Concomitant]
  9. PIASCLEDINE (AVOCADO AND SOYA INSAPONIFIABLE) [Concomitant]
  10. NORMACOL (STERCULIA GUM) [Concomitant]
  11. LEXOMIL (BROMAZEPAM) [Concomitant]

REACTIONS (8)
  - ABNORMAL BEHAVIOUR [None]
  - DEPRESSED LEVEL OF CONSCIOUSNESS [None]
  - FLUID RETENTION [None]
  - HYPONATRAEMIA [None]
  - OEDEMA PERIPHERAL [None]
  - PSYCHOMOTOR RETARDATION [None]
  - URINARY TRACT INFECTION [None]
  - VENOUS INSUFFICIENCY [None]
